FAERS Safety Report 13394759 (Version 1)
Quarter: 2017Q2

REPORT INFORMATION
  Report Type: Spontaneous
  Country: US (occurrence: US)
  Receive Date: 20170403
  Receipt Date: 20170403
  Transmission Date: 20170830
  Serious: Yes (Hospitalization, Other)
  Sender: FDA-Public Use
  Company Number: US-STRIDES ARCOLAB LIMITED-2016SP005277

PATIENT

DRUGS (1)
  1. IBUPROFEN. [Suspect]
     Active Substance: IBUPROFEN
     Indication: BACK PAIN
     Dosage: 200 MG,(6 DF DOSAGE FORM)
     Route: 048

REACTIONS (5)
  - Abdominal pain upper [Recovered/Resolved]
  - Abdominal tenderness [Unknown]
  - Toxicity to various agents [Recovered/Resolved]
  - Pancreatitis acute [Recovered/Resolved]
  - Nausea [Recovered/Resolved]
